FAERS Safety Report 4804917-5 (Version None)
Quarter: 2005Q4

REPORT INFORMATION
  Report Type: 
  Country: None (occurrence: None)
  Receive Date: 20051020
  Receipt Date: 20050921
  Transmission Date: 20060501
  Serious: Yes (Other)
  Sender: FDA-Public Use
  Company Number: FR-BRISTOL-MYERS SQUIBB COMPANY-13120704

PATIENT
  Age: 53 Year
  Sex: Female

DRUGS (3)
  1. HYDREA [Suspect]
     Indication: POLYCYTHAEMIA VERA
     Dosage: DURATION OF THERAPY:  ^SEVERAL YEARS^
     Route: 048
  2. HALDOL [Concomitant]
     Indication: SCHIZOPHRENIA
     Dates: start: 20050801
  3. ZYPREXA [Concomitant]
     Indication: SCHIZOPHRENIA
     Dates: start: 20050801, end: 20050801

REACTIONS (6)
  - CONSTIPATION [None]
  - INTESTINAL INFARCTION [None]
  - LEUKOPENIA [None]
  - NEUTROPENIA [None]
  - THROMBOCYTOPENIA [None]
  - THROMBOPHLEBITIS [None]
